FAERS Safety Report 21655151 (Version 2)
Quarter: 2022Q4

REPORT INFORMATION
  Report Type: Spontaneous
  Country: US (occurrence: US)
  Receive Date: 20221129
  Receipt Date: 20221201
  Transmission Date: 20230113
  Serious: No
  Sender: FDA-Public Use
  Company Number: US-PFIZER INC-202201308426

PATIENT
  Age: 7 Year
  Sex: Female
  Weight: 22.23 kg

DRUGS (3)
  1. GENOTROPIN [Suspect]
     Active Substance: SOMATROPIN
     Indication: Silver-Russell syndrome
     Dosage: UNK, DAILY (1.1 EVERY DAY)
  2. GENOTROPIN [Suspect]
     Active Substance: SOMATROPIN
     Indication: Failure to thrive
  3. GENOTROPIN [Suspect]
     Active Substance: SOMATROPIN
     Indication: Growth retardation

REACTIONS (2)
  - Poor quality device used [Not Recovered/Not Resolved]
  - Device information output issue [Not Recovered/Not Resolved]
